FAERS Safety Report 9424256 (Version 1)
Quarter: 2013Q3

REPORT INFORMATION
  Report Type: Spontaneous
  Country: US (occurrence: None)
  Receive Date: 20130726
  Receipt Date: 20130726
  Transmission Date: 20140515
  Serious: Yes (Other)
  Sender: FDA-Public Use
  Company Number: None

PATIENT
  Age: 18 Year
  Sex: Female

DRUGS (4)
  1. MINOCYCLINE [Suspect]
     Route: 048
     Dates: start: 20080730, end: 20120413
  2. PREDNISONE [Concomitant]
  3. CETIRIZINE [Concomitant]
  4. HYDROXYZINE [Concomitant]

REACTIONS (9)
  - Drug dose omission [None]
  - Nausea [None]
  - Pruritus [None]
  - No therapeutic response [None]
  - Drug-induced liver injury [None]
  - Aspartate aminotransferase increased [None]
  - Alanine aminotransferase increased [None]
  - Blood bilirubin increased [None]
  - Antinuclear antibody positive [None]
